FAERS Safety Report 9664384 (Version 1)
Quarter: 2013Q4

REPORT INFORMATION
  Report Type: Spontaneous
  Country: US (occurrence: US)
  Receive Date: 20131101
  Receipt Date: 20131101
  Transmission Date: 20140711
  Serious: Yes (Hospitalization)
  Sender: FDA-Public Use
  Company Number: US-ASTRAZENECA-2013SE78407

PATIENT
  Age: 60 Year
  Sex: Male
  Weight: 53.1 kg

DRUGS (5)
  1. SYMBICORT [Suspect]
     Indication: CHRONIC OBSTRUCTIVE PULMONARY DISEASE
     Dosage: 160/4.5 MCG, 2 DOSES BID
     Route: 055
     Dates: start: 2011
  2. SYMBICORT [Suspect]
     Indication: EMPHYSEMA
     Dosage: 160/4.5 MCG, 2 DOSES BID
     Route: 055
     Dates: start: 2011
  3. SPIRIVA [Concomitant]
     Indication: CHRONIC OBSTRUCTIVE PULMONARY DISEASE
     Dosage: ONCE DAILY
  4. SPIRIVA [Concomitant]
     Indication: EMPHYSEMA
     Dosage: ONCE DAILY
  5. DALIRESP (ROFLUMIALST) [Concomitant]
     Indication: DYSPNOEA
     Dates: start: 2012

REACTIONS (4)
  - Dyspnoea [Unknown]
  - Pulmonary oedema [Unknown]
  - Respiratory disorder [Unknown]
  - Drug effect incomplete [Unknown]
